FAERS Safety Report 25495016 (Version 1)
Quarter: 2025Q2

REPORT INFORMATION
  Report Type: Spontaneous
  Country: SG (occurrence: SG)
  Receive Date: 20250630
  Receipt Date: 20250630
  Transmission Date: 20250717
  Serious: Yes (Other)
  Sender: PFIZER
  Company Number: SG-PFIZER INC-PV202500076189

PATIENT
  Age: 41 Year
  Sex: Male

DRUGS (5)
  1. CYTARABINE [Suspect]
     Active Substance: CYTARABINE
     Indication: Acute myeloid leukaemia
  2. CYTARABINE [Suspect]
     Active Substance: CYTARABINE
  3. CYTARABINE [Suspect]
     Active Substance: CYTARABINE
  4. IDARUBICIN [Concomitant]
     Active Substance: IDARUBICIN
     Indication: Acute myeloid leukaemia
  5. IDARUBICIN [Concomitant]
     Active Substance: IDARUBICIN

REACTIONS (2)
  - Hidradenitis [Recovered/Resolved]
  - Rash maculo-papular [Recovered/Resolved]
